FAERS Safety Report 7140952-2 (Version None)
Quarter: 2010Q4

REPORT INFORMATION
  Report Type: 
  Country: None (occurrence: None)
  Receive Date: 20101122
  Receipt Date: 20101029
  Transmission Date: 20110411
  Serious: Yes (Disabling)
  Sender: FDA-Public Use
  Company Number: ACO_20091_2010

PATIENT
  Age: 75 Year
  Sex: Female

DRUGS (9)
  1. AMPYRA (DALFAMPRIDINE) TABLET, 10MG [Suspect]
     Indication: GAIT DISTURBANCE
     Dosage: 10 MG, BID, 10 MG, ORAL
     Route: 048
     Dates: start: 20100605, end: 20100611
  2. AMPYRA (DALFAMPRIDINE) TABLET, 10MG [Suspect]
     Indication: GAIT DISTURBANCE
     Dosage: 10 MG, BID, 10 MG, ORAL
     Route: 048
     Dates: start: 20101022, end: 20101022
  3. ENABLEX [Concomitant]
  4. LISINOPRIL [Concomitant]
  5. LIPITOR [Concomitant]
  6. LEVOTHYROID (LEVOTHYROXINE SODIUM) [Concomitant]
  7. CALCIUM (CALCIUM) [Concomitant]
  8. VITAMIN D NOS (VITAMIN D NOS) [Concomitant]
  9. CENTRUM SILVER /01292501/ (ASCORBIC ACID, CALCIUM, MINERALS NOS, RETIN [Concomitant]

REACTIONS (1)
  - ABASIA [None]
